FAERS Safety Report 9661223 (Version 1)
Quarter: 2013Q4

REPORT INFORMATION
  Report Type: Report from Study
  Country: US (occurrence: US)
  Receive Date: 20131031
  Receipt Date: 20131031
  Transmission Date: 20140711
  Serious: Yes (Other)
  Sender: FDA-Public Use
  Company Number: US-TEVA-440326USA

PATIENT
  Sex: Female

DRUGS (4)
  1. ACTIQ [Suspect]
     Dates: start: 20130926
  2. MORPHINE ER [Concomitant]
     Indication: PAIN
     Route: 048
  3. FENTANYL PATCH [Concomitant]
     Indication: PAIN
     Route: 062
  4. LORAZEPAM [Concomitant]
     Indication: ANXIETY

REACTIONS (3)
  - General physical health deterioration [Unknown]
  - Asthenia [Unknown]
  - Adverse event [Unknown]
